FAERS Safety Report 7819533-0 (Version None)
Quarter: 2011Q4

REPORT INFORMATION
  Report Type: 
  Country: None (occurrence: None)
  Receive Date: 20111018
  Receipt Date: 20100927
  Transmission Date: 20120403
  Serious: No
  Sender: FDA-Public Use
  Company Number: US-ASTRAZENECA-2010SE34720

PATIENT
  Sex: Female
  Weight: 103 kg

DRUGS (10)
  1. METFORMIN HYDROCHLORIDE [Concomitant]
  2. LOVASTATIN [Concomitant]
  3. LORATADINE [Concomitant]
  4. GLYBERIDE [Concomitant]
  5. ACTOS [Concomitant]
  6. VENTOLIN [Concomitant]
  7. PATANASE [Concomitant]
  8. OMEPRAZOLE [Concomitant]
  9. SERTRALINE HYDROCHLORIDE [Concomitant]
  10. SYMBICORT [Suspect]
     Indication: ASTHMA
     Dosage: 160, 2 PUFFS
     Route: 055
     Dates: start: 20091215

REACTIONS (2)
  - FATIGUE [None]
  - DYSPNOEA [None]
